FAERS Safety Report 23175036 (Version 1)
Quarter: 2023Q4

REPORT INFORMATION
  Report Type: Spontaneous
  Country: AU (occurrence: AU)
  Receive Date: 20231112
  Receipt Date: 20231112
  Transmission Date: 20240110
  Serious: Yes (Other)
  Sender: FDA-Public Use
  Company Number: AU-BoehringerIngelheim-2023-BI-271036

PATIENT
  Age: 66 Year
  Sex: Female

DRUGS (7)
  1. PRAMIPEXOLE [Suspect]
     Active Substance: PRAMIPEXOLE
     Indication: Product used for unknown indication
     Dates: start: 2009, end: 202305
  2. PRAMIPEXOLE [Suspect]
     Active Substance: PRAMIPEXOLE
     Dates: start: 20230618
  3. PRAMIPEXOLE [Suspect]
     Active Substance: PRAMIPEXOLE
     Indication: Restless legs syndrome
     Dates: start: 20230515, end: 202306
  4. Cartia [Concomitant]
     Indication: Product used for unknown indication
  5. ATORVASTATIN [Concomitant]
     Active Substance: ATORVASTATIN
     Indication: Product used for unknown indication
  6. GABAPENTIN [Concomitant]
     Active Substance: GABAPENTIN
     Indication: Product used for unknown indication
     Dates: start: 2007
  7. INFLUENZA VIRUS VACCINE [Concomitant]
     Active Substance: INFLUENZA VIRUS VACCINE
     Indication: Product used for unknown indication
     Dates: start: 20230515

REACTIONS (8)
  - Seizure [Recovering/Resolving]
  - Headache [Recovering/Resolving]
  - Periorbital swelling [Not Recovered/Not Resolved]
  - Nausea [Recovering/Resolving]
  - Balance disorder [Not Recovered/Not Resolved]
  - Disturbance in attention [Unknown]
  - Muscle spasms [Unknown]
  - Product substitution issue [Unknown]

NARRATIVE: CASE EVENT DATE: 20230501
